FAERS Safety Report 22045774 (Version 2)
Quarter: 2023Q1

REPORT INFORMATION
  Report Type: Report from Study
  Country: US (occurrence: US)
  Receive Date: 20230228
  Receipt Date: 20230302
  Transmission Date: 20230417
  Serious: No
  Sender: FDA-Public Use
  Company Number: US-002147023-NVSC2023US045968

PATIENT
  Sex: Female

DRUGS (1)
  1. TABRECTA [Suspect]
     Active Substance: CAPMATINIB
     Indication: Lung neoplasm malignant
     Dosage: 400 MG, BID
     Route: 048
     Dates: start: 20221219

REACTIONS (4)
  - Hyperaesthesia teeth [Recovered/Resolved]
  - Retching [Recovered/Resolved]
  - Cough [Recovered/Resolved]
  - Product use complaint [Not Recovered/Not Resolved]
